FAERS Safety Report 9043338 (Version 1)
Quarter: 2013Q1

REPORT INFORMATION
  Report Type: Report from Study
  Country: US (occurrence: US)
  Receive Date: 20130129
  Receipt Date: 20130129
  Transmission Date: 20140127
  Serious: No
  Sender: FDA-Public Use
  Company Number: US-ABBOTT-12P-163-0912714-00

PATIENT
  Sex: Female
  Weight: 54.48 kg

DRUGS (1)
  1. HUMIRA 40 MG/0.8 ML PEN [Suspect]
     Indication: ANKYLOSING SPONDYLITIS
     Dates: start: 201105

REACTIONS (3)
  - Papule [Recovering/Resolving]
  - Rhinorrhoea [Recovering/Resolving]
  - Contusion [Recovering/Resolving]
